FAERS Safety Report 20596437 (Version 4)
Quarter: 2023Q1

REPORT INFORMATION
  Report Type: Spontaneous
  Country: US (occurrence: US)
  Receive Date: 20220315
  Receipt Date: 20230104
  Transmission Date: 20230417
  Serious: Yes (Other)
  Sender: FDA-Public Use
  Company Number: US-PFIZER INC-202200366617

PATIENT
  Age: 51 Year
  Sex: Male

DRUGS (2)
  1. INLYTA [Suspect]
     Active Substance: AXITINIB
     Dosage: UNK
     Dates: start: 20220117
  2. INLYTA [Suspect]
     Active Substance: AXITINIB
     Dosage: TAKE 3 MG IN THE MORNING AND 2 MG IN THE EVENING
     Route: 048
     Dates: start: 202208

REACTIONS (6)
  - Renal impairment [Unknown]
  - Hepatic enzyme increased [Unknown]
  - Thyroid disorder [Recovered/Resolved]
  - Blood pressure increased [Unknown]
  - Blister [Unknown]
  - Dry skin [Unknown]

NARRATIVE: CASE EVENT DATE: 20220101
